FAERS Safety Report 9212571 (Version 1)
Quarter: 2013Q2

REPORT INFORMATION
  Report Type: Spontaneous
  Country: DE (occurrence: DE)
  Receive Date: 20130405
  Receipt Date: 20130405
  Transmission Date: 20140414
  Serious: Yes (Congenital Anomaly)
  Sender: FDA-Public Use
  Company Number: DE-BIOGENIDEC-2013BI029640

PATIENT
  Age: 0 Day
  Sex: Male

DRUGS (1)
  1. AVONEX [Suspect]
     Indication: MATERNAL EXPOSURE TIMING UNSPECIFIED
     Route: 064
     Dates: start: 19980601

REACTIONS (2)
  - Congenital intestinal malformation [Not Recovered/Not Resolved]
  - Congenital pharyngeal anomaly [Recovered/Resolved]
